FAERS Safety Report 12587939 (Version 1)
Quarter: 2016Q3

REPORT INFORMATION
  Report Type: Report from Study
  Country: US (occurrence: US)
  Receive Date: 20160725
  Receipt Date: 20160725
  Transmission Date: 20161109
  Serious: Yes (Hospitalization, Other)
  Sender: FDA-Public Use
  Company Number: US-GILEAD-2016-0224939

PATIENT
  Age: 50 Year
  Sex: Female

DRUGS (12)
  1. PRILOSEC [Concomitant]
     Active Substance: OMEPRAZOLE MAGNESIUM
  2. AMBRISENTAN [Suspect]
     Active Substance: AMBRISENTAN
     Indication: PULMONARY ARTERIAL HYPERTENSION
     Dosage: 5 MG, QD
     Route: 065
     Dates: start: 20130406
  3. CARVEDILOL. [Concomitant]
     Active Substance: CARVEDILOL
  4. ADCIRCA [Concomitant]
     Active Substance: TADALAFIL
  5. TIVICAY [Concomitant]
     Active Substance: DOLUTEGRAVIR SODIUM
  6. TRIAMTERENE AND HYDROCHLOROTHIAZID [Concomitant]
     Active Substance: HYDROCHLOROTHIAZIDE\TRIAMTERENE
  7. NIFEDIAC CC [Concomitant]
     Active Substance: NIFEDIPINE
  8. AMITRIPTYLINE [Concomitant]
     Active Substance: AMITRIPTYLINE
  9. ASPIRIN                            /00002701/ [Concomitant]
     Active Substance: ASPIRIN
  10. TRUVADA [Concomitant]
     Active Substance: EMTRICITABINE\TENOFOVIR DISOPROXIL FUMARATE
  11. ORENITRAM [Concomitant]
     Active Substance: TREPROSTINIL
  12. XANAX [Concomitant]
     Active Substance: ALPRAZOLAM

REACTIONS (3)
  - Migraine [Unknown]
  - Loss of consciousness [Unknown]
  - Cerebrovascular accident [Unknown]

NARRATIVE: CASE EVENT DATE: 20160704
